FAERS Safety Report 6512087 (Version 4)
Quarter: 2024Q2

REPORT INFORMATION
  Report Type: Spontaneous
  Country: FR (occurrence: FR)
  Receive Date: 20071221
  Receipt Date: 20240606
  Transmission Date: 20240716
  Serious: Yes (Hospitalization)
  Sender: FDA-Public Use
  Company Number: FR-WYE-H01814107

PATIENT
  Age: 59 Year
  Sex: Female

DRUGS (8)
  1. INIPOMP [Suspect]
     Active Substance: PANTOPRAZOLE SODIUM
     Indication: Arthralgia
     Dosage: DOSAGE FORMS, 0 IN 1
     Route: 048
     Dates: start: 20070816, end: 20070826
  2. FELDENE [Suspect]
     Active Substance: PIROXICAM
     Indication: Arthralgia
     Dosage: 20 MILLIGRAM, QD
     Route: 030
     Dates: start: 20070615, end: 20070914
  3. FELDENE [Suspect]
     Active Substance: PIROXICAM
     Dosage: 20 MG (FREQUENCY UNSPECIFIED)
     Route: 030
     Dates: start: 20070816, end: 20070822
  4. RAMIPRIL [Suspect]
     Active Substance: RAMIPRIL
     Indication: Essential hypertension
     Dosage: UNK
     Route: 048
     Dates: start: 20070615, end: 20070914
  5. RAMIPRIL [Suspect]
     Active Substance: RAMIPRIL
     Indication: Hypertension
  6. ACETAMINOPHEN\CAFFEINE\CARBASPIRIN CALCIUM\CHLORPHENIRAMINE MALEATE\PR [Suspect]
     Active Substance: ACETAMINOPHEN\CAFFEINE\CARBASPIRIN CALCIUM\CHLORPHENIRAMINE MALEATE\PROPOXYPHENE HYDROCHLORIDE
     Indication: Arthralgia
     Dosage: 457 MG (FREQUENCY UNSPECIFIED)
     Route: 048
     Dates: start: 20070816, end: 20070822
  7. TETRAZEPAM [Suspect]
     Active Substance: TETRAZEPAM
     Indication: Arthralgia
     Dosage: 50 MILLIGRAM, QD
     Route: 048
     Dates: start: 20070816, end: 20070826
  8. ACETAMINOPHEN\CAFFEINE\PROPOXYPHENE HYDROCHLORIDE [Suspect]
     Active Substance: ACETAMINOPHEN\CAFFEINE\PROPOXYPHENE HYDROCHLORIDE
     Indication: Arthralgia
     Dosage: 457 MILLIGRAM, QD
     Route: 048
     Dates: start: 20070816, end: 20070822

REACTIONS (3)
  - Henoch-Schonlein purpura [Not Recovered/Not Resolved]
  - Rectal haemorrhage [Not Recovered/Not Resolved]
  - Vascular purpura [Not Recovered/Not Resolved]

NARRATIVE: CASE EVENT DATE: 20070901
